FAERS Safety Report 15836892 (Version 1)
Quarter: 2019Q1

REPORT INFORMATION
  Report Type: Spontaneous
  Country: NO (occurrence: NO)
  Receive Date: 20190117
  Receipt Date: 20190117
  Transmission Date: 20190417
  Serious: Yes (Death, Other)
  Sender: FDA-Public Use
  Company Number: NO-TEVA-2019-NO-997416

PATIENT
  Age: 80 Year
  Sex: Male

DRUGS (8)
  1. ANAGRELIDE. [Suspect]
     Active Substance: ANAGRELIDE HYDROCHLORIDE
     Indication: PRIMARY MYELOFIBROSIS
     Dosage: 1 MILLIGRAM DAILY;
     Route: 065
  2. DASATINIB. [Suspect]
     Active Substance: DASATINIB
     Indication: ACUTE MYELOID LEUKAEMIA
     Dosage: 100 MILLIGRAM DAILY; TREATMENT WAS CONTINUED FOR APPROXIMATELY 4 MONTHS
     Route: 065
  3. IMATINIB. [Suspect]
     Active Substance: IMATINIB MESYLATE
     Indication: ACUTE MYELOID LEUKAEMIA
     Dosage: 400 MILLIGRAM DAILY;
     Route: 065
  4. VALPROIC ACID. [Concomitant]
     Active Substance: VALPROIC ACID
     Indication: ACUTE MYELOID LEUKAEMIA
     Dosage: 300 MG PLUS 600 MG/DAY
     Route: 065
  5. PREDNISOLONE. [Concomitant]
     Active Substance: PREDNISOLONE
     Route: 065
  6. WARFARIN [Concomitant]
     Active Substance: WARFARIN
     Route: 065
  7. HYDROXYUREA. [Suspect]
     Active Substance: HYDROXYUREA
     Indication: PRIMARY MYELOFIBROSIS
     Dosage: 2500 MILLIGRAM DAILY;
     Route: 065
  8. METFORMIN [Concomitant]
     Active Substance: METFORMIN HYDROCHLORIDE
     Route: 065

REACTIONS (7)
  - Neutropenia [Unknown]
  - Pericardial effusion [Recovering/Resolving]
  - Palpitations [Unknown]
  - Death [Fatal]
  - Headache [Unknown]
  - Diarrhoea [Recovered/Resolved]
  - Back pain [Unknown]
